FAERS Safety Report 8310298-5 (Version None)
Quarter: 2012Q2

REPORT INFORMATION
  Report Type: 
  Country: None (occurrence: None)
  Receive Date: 20120425
  Receipt Date: 20120416
  Transmission Date: 20120825
  Serious: Yes (Other)
  Sender: FDA-Public Use
  Company Number: US-ASTRAZENECA-2012SE25068

PATIENT
  Age: 60 Year
  Sex: Female

DRUGS (1)
  1. ATACAND HCT [Suspect]
     Route: 048

REACTIONS (3)
  - ABNORMAL SENSATION IN EYE [None]
  - VISUAL IMPAIRMENT [None]
  - GLAUCOMA [None]
